FAERS Safety Report 10045344 (Version 1)
Quarter: 2014Q1

REPORT INFORMATION
  Report Type: Spontaneous
  Country: US (occurrence: US)
  Receive Date: 20140328
  Receipt Date: 20140328
  Transmission Date: 20141002
  Serious: Yes (Hospitalization)
  Sender: FDA-Public Use
  Company Number: US-JNJFOC-20140317455

PATIENT
  Sex: Male

DRUGS (9)
  1. IMBRUVICA [Suspect]
     Indication: MANTLE CELL LYMPHOMA
     Route: 048
     Dates: start: 20140206
  2. TYELNOL [Concomitant]
  3. BUPROPION [Concomitant]
  4. LASIX [Concomitant]
  5. CIPRO [Concomitant]
  6. ASPIRIN [Concomitant]
  7. ALBUTEROL [Concomitant]
     Route: 055
  8. ZYRTEC [Concomitant]
  9. MECLIZINE [Concomitant]

REACTIONS (1)
  - Cardiac failure congestive [Recovering/Resolving]
